FAERS Safety Report 13462254 (Version 2)
Quarter: 2018Q2

REPORT INFORMATION
  Report Type: Spontaneous
  Country: US (occurrence: US)
  Receive Date: 20170420
  Receipt Date: 20180419
  Transmission Date: 20180711
  Serious: No
  Sender: FDA-Public Use
  Company Number: US-BAUSCH-BL-2017-001510

PATIENT
  Age: 59 Year
  Sex: Female

DRUGS (1)
  1. ARESTIN [Suspect]
     Active Substance: MINOCYCLINE HYDROCHLORIDE
     Indication: PERIODONTAL OPERATION
     Dosage: 2 CARTRIDGES
     Route: 050
     Dates: start: 20160920, end: 20160920

REACTIONS (2)
  - Periodontal disease [Unknown]
  - Product quality issue [Unknown]

NARRATIVE: CASE EVENT DATE: 20170110
